FAERS Safety Report 12967121 (Version 1)
Quarter: 2016Q4

REPORT INFORMATION
  Report Type: Spontaneous
  Country: US (occurrence: US)
  Receive Date: 20161122
  Receipt Date: 20161122
  Transmission Date: 20170207
  Serious: Yes (Life-Threatening, Hospitalization)
  Sender: FDA-Public Use
  Company Number: None

PATIENT
  Age: 63 Year
  Sex: Female
  Weight: 58.97 kg

DRUGS (7)
  1. LEVOTHYROXINE. [Concomitant]
     Active Substance: LEVOTHYROXINE
  2. LISINOPRIL. [Concomitant]
     Active Substance: LISINOPRIL
  3. ONE-A-DAY NOS [Concomitant]
     Active Substance: MINERALS\VITAMINS
  4. DIVALPROEX SODIUM. [Suspect]
     Active Substance: DIVALPROEX SODIUM
     Indication: INCOHERENT
     Dosage: ?          QUANTITY:I GIFT/LETA IAN A???;?
     Route: 048
     Dates: start: 20160701, end: 20160801
  5. LASIX [Concomitant]
     Active Substance: FUROSEMIDE
  6. DIVALPROEX SODIUM. [Suspect]
     Active Substance: DIVALPROEX SODIUM
     Indication: LOSS OF CONSCIOUSNESS
     Dosage: ?          QUANTITY:I GIFT/LETA IAN A???;?
     Route: 048
     Dates: start: 20160701, end: 20160801
  7. ASPIRIN. [Concomitant]
     Active Substance: ASPIRIN

REACTIONS (7)
  - Weight increased [None]
  - Hallucination [None]
  - Alopecia [None]
  - Peripheral swelling [None]
  - Hepatic enzyme increased [None]
  - Liver injury [None]
  - Capillary leak syndrome [None]

NARRATIVE: CASE EVENT DATE: 20160708
